FAERS Safety Report 9788357 (Version 3)
Quarter: 2014Q1

REPORT INFORMATION
  Report Type: Report from Study
  Country: BR (occurrence: BR)
  Receive Date: 20131230
  Receipt Date: 20140123
  Transmission Date: 20141002
  Serious: Yes (Other)
  Sender: FDA-Public Use
  Company Number: PHHY2013BR149373

PATIENT
  Age: 49 Year
  Sex: Female
  Weight: 70 kg

DRUGS (4)
  1. GILENYA [Suspect]
     Indication: MULTIPLE SCLEROSIS
     Dosage: 1 DF, QD
     Route: 048
     Dates: start: 20131010
  2. CERAZETTE [Suspect]
     Indication: MENSTRUAL DISORDER
     Dosage: UNK UKN, UNK
     Dates: start: 2002
  3. RIVOTRIL [Concomitant]
     Indication: INSOMNIA
     Dosage: UNK UKN, UNK
     Dates: start: 201212
  4. AMITRIPTYLINE [Concomitant]
     Dosage: 1 DF, UNK

REACTIONS (5)
  - Dry skin [Unknown]
  - Skin exfoliation [Unknown]
  - Sensation of heaviness [Unknown]
  - Menstrual disorder [Unknown]
  - Drug ineffective [Unknown]
